FAERS Safety Report 9165810 (Version 3)
Quarter: 2013Q2

REPORT INFORMATION
  Report Type: Report from Study
  Country: US (occurrence: US)
  Receive Date: 20130315
  Receipt Date: 20130520
  Transmission Date: 20140414
  Serious: Yes (Other)
  Sender: FDA-Public Use
  Company Number: US-009507513-1303USA007261

PATIENT
  Age: 47 Year
  Sex: Male
  Weight: 130.1 kg

DRUGS (11)
  1. VICTRELIS [Suspect]
     Indication: CHRONIC HEPATITIS C
     Dosage: 4 TABLETS, TID
     Route: 048
     Dates: start: 20121122
  2. VICTRELIS [Suspect]
     Dosage: 200 MG, Q8H
     Route: 048
  3. REBETOL [Suspect]
     Indication: CHRONIC HEPATITIS C
     Dosage: 1200 MG, DAILY IN DIVIDED DOSES
     Dates: start: 2010
  4. REBETOL [Suspect]
     Dosage: 1000 MG, QD
  5. REBETOL [Suspect]
     Dosage: 600/400 MG
     Route: 048
     Dates: start: 20121122
  6. PEGASYS [Suspect]
     Indication: CHRONIC HEPATITIS C
     Dosage: UNK UNK, QW
     Route: 058
     Dates: start: 2010
  7. PEGASYS [Suspect]
     Dosage: 180 MICROGRAM, QW
     Route: 058
     Dates: start: 20121122
  8. PROMACTA [Concomitant]
  9. LISINOPRIL [Concomitant]
     Indication: BLOOD PRESSURE
     Dosage: 20 MG, QD
     Route: 048
  10. ZOFRAN [Concomitant]
     Indication: NAUSEA
     Dosage: 4 MG, PRN
     Route: 048
     Dates: start: 20121122
  11. IBUPROFEN [Suspect]
     Dosage: 1 DF, PRN

REACTIONS (8)
  - Platelet count decreased [Unknown]
  - Disturbance in attention [Not Recovered/Not Resolved]
  - Feeling abnormal [Unknown]
  - Anaemia [Unknown]
  - Dry mouth [Unknown]
  - Dry skin [Unknown]
  - Fatigue [Not Recovered/Not Resolved]
  - Confusional state [Unknown]
